FAERS Safety Report 19763307 (Version 1)
Quarter: 2021Q3

REPORT INFORMATION
  Report Type: Spontaneous
  Country: US (occurrence: US)
  Receive Date: 20210830
  Receipt Date: 20210830
  Transmission Date: 20211014
  Serious: No
  Sender: FDA-Public Use
  Company Number: US-ENDO PHARMACEUTICALS INC-2021-001613

PATIENT
  Sex: Female

DRUGS (1)
  1. MEGESTROL ACETATE. [Suspect]
     Active Substance: MEGESTROL ACETATE
     Indication: ABNORMAL LOSS OF WEIGHT
     Dosage: DOSE OF 625/5, UNK UNKNOWN, UNKNOWN
     Route: 048

REACTIONS (1)
  - Neuropathy peripheral [Unknown]
